FAERS Safety Report 13093079 (Version 3)
Quarter: 2017Q2

REPORT INFORMATION
  Report Type: Spontaneous
  Country: US (occurrence: US)
  Receive Date: 20170106
  Receipt Date: 20170412
  Transmission Date: 20170830
  Serious: Yes (Other)
  Sender: FDA-Public Use
  Company Number: US-JNJFOC-20170102660

PATIENT
  Age: 69 Year
  Sex: Male
  Weight: 68.04 kg

DRUGS (8)
  1. PATRIOT RISPERIDONE [Suspect]
     Active Substance: RISPERIDONE
     Indication: SCHIZOPHRENIA
     Route: 048
     Dates: start: 1994, end: 2005
  2. PATRIOT RISPERIDONE [Suspect]
     Active Substance: RISPERIDONE
     Indication: SCHIZOPHRENIA
     Route: 048
     Dates: start: 2005, end: 2005
  3. RISPERDAL CONSTA [Suspect]
     Active Substance: RISPERIDONE
     Indication: SCHIZOPHRENIA
     Route: 030
     Dates: start: 2005, end: 2014
  4. RISPERIDONE. [Suspect]
     Active Substance: RISPERIDONE
     Indication: SCHIZOPHRENIA
     Dosage: 2 MG TABLET, 1 TABLET IN THE MORNING??AND 1 TABLET IN THE EVENING
     Route: 048
  5. PATRIOT RISPERIDONE [Suspect]
     Active Substance: RISPERIDONE
     Indication: SCHIZOPHRENIA
     Route: 048
     Dates: start: 20170209
  6. PATRIOT RISPERIDONE [Suspect]
     Active Substance: RISPERIDONE
     Indication: SCHIZOPHRENIA
     Route: 048
     Dates: start: 2014, end: 20161204
  7. PATRIOT RISPERIDONE [Suspect]
     Active Substance: RISPERIDONE
     Indication: SCHIZOPHRENIA
     Dosage: AN UNSPECIFIED STRENGTH (NOT FULL)
     Route: 048
     Dates: start: 201701
  8. CHROMIUM PICOLINATE [Concomitant]
     Active Substance: CHROMIUM PICOLINATE
     Indication: BLOOD GLUCOSE INCREASED
     Dosage: TOOK FOR THREE MONTHS
     Route: 065
     Dates: start: 201606, end: 201612

REACTIONS (19)
  - Unevaluable event [Unknown]
  - Hallucination [Unknown]
  - Persecutory delusion [Unknown]
  - Treatment noncompliance [Unknown]
  - Decreased appetite [Unknown]
  - Blood glucose increased [Not Recovered/Not Resolved]
  - Chronic kidney disease [Recovering/Resolving]
  - Product counterfeit [Unknown]
  - Accidental exposure to product [Unknown]
  - Weight increased [Not Recovered/Not Resolved]
  - Blood prolactin increased [Not Recovered/Not Resolved]
  - Living alone [Unknown]
  - Malaise [Unknown]
  - Underdose [Unknown]
  - Injection site pain [Unknown]
  - Wrong technique in product usage process [Unknown]
  - Device leakage [Unknown]
  - Agitation [Not Recovered/Not Resolved]
  - Psychotic disorder [Unknown]

NARRATIVE: CASE EVENT DATE: 201612
